FAERS Safety Report 8454902-X (Version None)
Quarter: 2012Q2

REPORT INFORMATION
  Report Type: 
  Country: None (occurrence: None)
  Receive Date: 20120614
  Receipt Date: 20120130
  Transmission Date: 20120825
  Serious: Yes (Hospitalization, Disabling)
  Sender: FDA-Public Use
  Company Number: WAES 1201USA02789

PATIENT
  Age: 72 Year
  Sex: Male

DRUGS (2)
  1. PLACEBO [Suspect]
     Indication: TYPE 2 DIABETES MELLITUS
     Dosage: PO
     Route: 048
     Dates: start: 20110816
  2. ZOCOR [Suspect]
     Indication: PRODUCT USED FOR UNKNOWN INDICATION
     Dosage: 10MG/PM;PO
     Route: 048
     Dates: start: 20111006, end: 20111017

REACTIONS (7)
  - FALL [None]
  - LOSS OF CONSCIOUSNESS [None]
  - SYRINGOMYELIA [None]
  - AREFLEXIA [None]
  - INTERVERTEBRAL DISC PROTRUSION [None]
  - SPINAL OSTEOARTHRITIS [None]
  - SHOCK [None]
